FAERS Safety Report 19381486 (Version 1)
Quarter: 2021Q2

REPORT INFORMATION
  Report Type: Spontaneous
  Country: NL (occurrence: NL)
  Receive Date: 20210607
  Receipt Date: 20210607
  Transmission Date: 20210717
  Serious: Yes (Hospitalization)
  Sender: FDA-Public Use
  Company Number: NL-AUROBINDO-AUR-APL-2019-081835

PATIENT
  Age: 50 Year
  Sex: Female

DRUGS (5)
  1. CALCIUM CARBONATE. [Suspect]
     Active Substance: CALCIUM CARBONATE
     Indication: PRODUCT USED FOR UNKNOWN INDICATION
     Dosage: 3000 MG/DAY
     Route: 065
  2. CALCIUM CARBONATE. [Suspect]
     Active Substance: CALCIUM CARBONATE
     Dosage: 6000 MILLIGRAM
     Route: 048
  3. DIHYDROTACHYSTEROL [Suspect]
     Active Substance: DIHYDROTACHYSTEROL
     Indication: PRODUCT USED FOR UNKNOWN INDICATION
     Dosage: 0.4 MG/DAY
     Route: 065
  4. HYDROCHLOROTHIAZIDE TABLET [Suspect]
     Active Substance: HYDROCHLOROTHIAZIDE
     Indication: PRODUCT USED FOR UNKNOWN INDICATION
     Dosage: UNK
     Route: 065
  5. CALCIUM CARBONATE. [Suspect]
     Active Substance: CALCIUM CARBONATE
     Dosage: 4500 MILLIGRAM
     Route: 048

REACTIONS (1)
  - Hypercalcaemia [Recovered/Resolved]
